FAERS Safety Report 9384336 (Version 1)
Quarter: 2013Q3

REPORT INFORMATION
  Report Type: Report from Study
  Country: FR (occurrence: FR)
  Receive Date: 20130705
  Receipt Date: 20130705
  Transmission Date: 20140515
  Serious: Yes (Death)
  Sender: FDA-Public Use
  Company Number: PHHY2013FR068990

PATIENT
  Age: 73 Year
  Sex: Female

DRUGS (3)
  1. GLIVEC [Suspect]
     Indication: CHRONIC MYELOID LEUKAEMIA
     Dosage: 400 MG, QD
     Dates: start: 20060327, end: 200609
  2. GLIVEC [Suspect]
     Dosage: 300 MG, QD
     Dates: start: 200609, end: 200905
  3. GLIVEC [Suspect]
     Dosage: 100 MG, BID
     Dates: start: 200905

REACTIONS (2)
  - Death [Fatal]
  - Drug intolerance [Unknown]
